FAERS Safety Report 10046409 (Version 1)
Quarter: 2014Q1

REPORT INFORMATION
  Report Type: Spontaneous
  Country: US (occurrence: US)
  Receive Date: 20140331
  Receipt Date: 20140331
  Transmission Date: 20141002
  Serious: No
  Sender: FDA-Public Use
  Company Number: US-BIOGENIDEC-2014BI027589

PATIENT
  Age: 56 Year
  Sex: Female

DRUGS (4)
  1. TECFIDERA [Suspect]
     Indication: MULTIPLE SCLEROSIS
     Route: 048
     Dates: start: 20130626, end: 20130701
  2. TECFIDERA [Suspect]
     Indication: MULTIPLE SCLEROSIS
     Route: 048
     Dates: start: 20130702
  3. CYMBALTA [Concomitant]
     Indication: PAIN
  4. ESTRADIOL [Concomitant]
     Indication: OESTROGEN REPLACEMENT THERAPY

REACTIONS (2)
  - Overdose [Recovered/Resolved]
  - Hot flush [Not Recovered/Not Resolved]
